FAERS Safety Report 20338483 (Version 4)
Quarter: 2025Q1

REPORT INFORMATION
  Report Type: Spontaneous
  Country: CA (occurrence: CA)
  Receive Date: 20220115
  Receipt Date: 20250103
  Transmission Date: 20250409
  Serious: Yes (Other)
  Sender: CIPHER
  Company Number: CA-CIPHER-2021-CA-002120

PATIENT
  Age: 50 Year
  Sex: Female
  Weight: 74 kg

DRUGS (10)
  1. TRAMADOL HYDROCHLORIDE [Suspect]
     Active Substance: TRAMADOL HYDROCHLORIDE
     Indication: Product used for unknown indication
     Route: 065
  2. immunoglobulin [Concomitant]
     Route: 042
  3. ASPIRIN [Suspect]
     Active Substance: ASPIRIN
     Indication: Product used for unknown indication
  4. CETIRIZINE [Suspect]
     Active Substance: CETIRIZINE HYDROCHLORIDE
     Indication: Product used for unknown indication
  5. CYCLOSPORINE [Suspect]
     Active Substance: CYCLOSPORINE
     Indication: Chronic spontaneous urticaria
  6. CLINDAMYCIN [Suspect]
     Active Substance: CLINDAMYCIN
     Indication: Product used for unknown indication
  7. CODEINE [Suspect]
     Active Substance: CODEINE
     Indication: Product used for unknown indication
  8. OMALIZUMAB [Suspect]
     Active Substance: OMALIZUMAB
     Indication: Chronic spontaneous urticaria
     Route: 058
     Dates: start: 20200123
  9. BENADRYL [Concomitant]
     Active Substance: DIPHENHYDRAMINE HYDROCHLORIDE
     Indication: Product used for unknown indication
  10. HYDROXYCHLOROQUINE SULFATE [Concomitant]
     Active Substance: HYDROXYCHLOROQUINE SULFATE
     Indication: Product used for unknown indication
     Route: 048

REACTIONS (25)
  - Nasal septum deviation [Unknown]
  - Pain [Unknown]
  - Pharyngitis [Unknown]
  - Product dose omission issue [Unknown]
  - Pruritus [Unknown]
  - Rash [Unknown]
  - Respiratory tract congestion [Unknown]
  - Sinus congestion [Unknown]
  - Skin mass [Unknown]
  - Spinal disorder [Unknown]
  - Drug hypersensitivity [Unknown]
  - Swelling face [Unknown]
  - Urticaria [Unknown]
  - Weight decreased [Unknown]
  - Asthenia [Unknown]
  - Emotional distress [Unknown]
  - Drug ineffective [Unknown]
  - Anxiety [Unknown]
  - Product use in unapproved indication [Unknown]
  - Eye swelling [Unknown]
  - Facial pain [Unknown]
  - Fatigue [Unknown]
  - Hyperhidrosis [Unknown]
  - Hypoaesthesia [Unknown]
  - Myalgia [Unknown]

NARRATIVE: CASE EVENT DATE: 20171101
